FAERS Safety Report 23653033 (Version 2)
Quarter: 2024Q2

REPORT INFORMATION
  Report Type: Spontaneous
  Country: BE (occurrence: BE)
  Receive Date: 20240320
  Receipt Date: 20240403
  Transmission Date: 20240716
  Serious: Yes (Other)
  Sender: FDA-Public Use
  Company Number: BE-PFIZER INC-PV202400030082

PATIENT
  Age: 58 Year
  Sex: Female
  Weight: 65 kg

DRUGS (7)
  1. CIBINQO [Suspect]
     Active Substance: ABROCITINIB
     Indication: Pruritus
     Dosage: 200 MG, 1X/DAY
     Route: 048
     Dates: start: 20240216, end: 20240305
  2. CIBINQO [Suspect]
     Active Substance: ABROCITINIB
     Indication: Eczema
     Dosage: 100 MG, 1X/DAY
     Route: 048
     Dates: start: 20240306
  3. CIBINQO [Suspect]
     Active Substance: ABROCITINIB
     Indication: Dermatitis atopic
     Dosage: ALTERNATING 100MG -200MG -100MG
     Route: 048
     Dates: start: 202403, end: 20240321
  4. ESCITALOPRAM OXALATE [Concomitant]
     Active Substance: ESCITALOPRAM OXALATE
     Indication: Depression
     Dosage: 200 MG
     Dates: start: 202312
  5. PROTHIPENDYL HYDROCHLORIDE [Concomitant]
     Active Substance: PROTHIPENDYL HYDROCHLORIDE
     Indication: Depression
     Dosage: UNK
     Dates: start: 202312
  6. AMLODIPINE BESYLATE [Concomitant]
     Active Substance: AMLODIPINE BESYLATE
     Indication: Hypertension
     Dosage: UNK
     Dates: start: 2018
  7. BISOPROLOL [Concomitant]
     Active Substance: BISOPROLOL\BISOPROLOL FUMARATE
     Indication: Hypertension
     Dosage: UNK
     Dates: start: 2018

REACTIONS (4)
  - Renal impairment [Not Recovered/Not Resolved]
  - Nausea [Recovered/Resolved]
  - Drug ineffective [Unknown]
  - Abdominal pain upper [Recovered/Resolved]

NARRATIVE: CASE EVENT DATE: 20240201
